FAERS Safety Report 5676899-8 (Version None)
Quarter: 2008Q1

REPORT INFORMATION
  Report Type: 
  Country: None (occurrence: None)
  Receive Date: 20080324
  Receipt Date: 20080313
  Transmission Date: 20080703
  Serious: Yes (Other)
  Sender: FDA-Public Use
  Company Number: US-MERCK-0705USA02809

PATIENT
  Age: 73 Year
  Sex: Female
  Weight: 64 kg

DRUGS (2)
  1. FOSAMAX [Suspect]
     Indication: OSTEOPOROSIS
     Route: 048
     Dates: start: 20000601, end: 20060614
  2. PAXIL [Concomitant]
     Indication: ANXIETY
     Route: 065
     Dates: start: 19990101

REACTIONS (28)
  - ATRIOVENTRICULAR BLOCK FIRST DEGREE [None]
  - ATROPHIC VULVOVAGINITIS [None]
  - BUNDLE BRANCH BLOCK LEFT [None]
  - CATARACT [None]
  - CONTUSION [None]
  - DEAFNESS [None]
  - DENTAL CARIES [None]
  - DIASTOLIC DYSFUNCTION [None]
  - DYSPHONIA [None]
  - FALL [None]
  - GINGIVAL BLEEDING [None]
  - GINGIVAL DISORDER [None]
  - HEADACHE [None]
  - HORDEOLUM [None]
  - HYPOTHYROIDISM [None]
  - IMPAIRED HEALING [None]
  - LIP SWELLING [None]
  - ORAL INFECTION [None]
  - OSTEOARTHRITIS [None]
  - PARANASAL SINUS HYPERSECRETION [None]
  - PERIODONTAL DISEASE [None]
  - PHARYNGOLARYNGEAL PAIN [None]
  - PRESSURE OF SPEECH [None]
  - PULPITIS DENTAL [None]
  - RASH [None]
  - RESORPTION BONE INCREASED [None]
  - TOOTH ABSCESS [None]
  - TOOTH LOSS [None]
